FAERS Safety Report 9194414 (Version 1)
Quarter: 2013Q1

REPORT INFORMATION
  Report Type: Spontaneous
  Country: US (occurrence: US)
  Receive Date: 20130327
  Receipt Date: 20130327
  Transmission Date: 20140127
  Serious: No
  Sender: FDA-Public Use
  Company Number: US-ALLERGAN-1203814US

PATIENT
  Age: 65 Year
  Sex: Female

DRUGS (7)
  1. LATISSE 0.03% [Suspect]
     Indication: GROWTH OF EYELASHES
     Dosage: 2 GTT, QOD
     Route: 061
     Dates: start: 201112
  2. THYROID MEDICATION [Concomitant]
     Indication: PRODUCT USED FOR UNKNOWN INDICATION
  3. CALCIUM [Concomitant]
     Indication: PRODUCT USED FOR UNKNOWN INDICATION
  4. VITAMIN D /00107901/ [Concomitant]
     Indication: PRODUCT USED FOR UNKNOWN INDICATION
  5. RESTASIS? [Concomitant]
     Indication: PRODUCT USED FOR UNKNOWN INDICATION
     Dosage: UNK
  6. FISH OIL/ FLAX OIL [Concomitant]
     Indication: PRODUCT USED FOR UNKNOWN INDICATION
  7. ARTIFICIAL TEARS                   /00445101/ [Concomitant]
     Indication: PRODUCT USED FOR UNKNOWN INDICATION

REACTIONS (4)
  - Eyelid thickening [Unknown]
  - Meibomian gland dysfunction [Unknown]
  - Inappropriate schedule of drug administration [Unknown]
  - Rash [Unknown]
